FAERS Safety Report 17834827 (Version 7)
Quarter: 2020Q3

REPORT INFORMATION
  Report Type: Report from Study
  Country: None (occurrence: ES)
  Receive Date: 20200528
  Receipt Date: 20200713
  Transmission Date: 20201103
  Serious: Yes (Other)
  Sender: FDA-Public Use
  Company Number: ES-ABBVIE-20K-144-3300230-00

PATIENT
  Age: 83 Year
  Sex: Male
  Weight: 65 kg

DRUGS (8)
  1. DUODOPA [Suspect]
     Active Substance: CARBIDOPA\LEVODOPA
     Dosage: INCREASE IN MORNING DOSE, INCREASE CONTINUOUS DOSE, INCREASE?EXTRA DOSE
     Route: 050
     Dates: start: 20200327, end: 202004
  2. DUODOPA [Suspect]
     Active Substance: CARBIDOPA\LEVODOPA
     Dosage: INCREASE IN MORNING DOSE AND CONTINUOUS DOSE
     Route: 050
     Dates: start: 202003, end: 20200327
  3. DUODOPA [Suspect]
     Active Substance: CARBIDOPA\LEVODOPA
     Indication: PARKINSON^S DISEASE
     Dosage: FOUR TO FIVE EXTRA DOSES WERE ADMINISTERED PER DAY
     Route: 050
     Dates: start: 20200219, end: 20200311
  4. DUODOPA [Suspect]
     Active Substance: CARBIDOPA\LEVODOPA
     Dosage: DECREASE THE CONTINUOUS DOSE BY 0.2ML?CONTINUOUS DOSE DECREASED BY 0.2ML
     Route: 050
     Dates: start: 20200320, end: 202003
  5. DUODOPA [Suspect]
     Active Substance: CARBIDOPA\LEVODOPA
     Dosage: INCREASED CONTINUOUS DOSE, INCREASED EXTRA DOSE
     Route: 050
     Dates: start: 202004, end: 20200612
  6. DUODOPA [Suspect]
     Active Substance: CARBIDOPA\LEVODOPA
     Dosage: INCREASES THE CONTINUOUS DOSE TO 0.2ML
     Route: 050
     Dates: start: 20200612
  7. DUODOPA [Suspect]
     Active Substance: CARBIDOPA\LEVODOPA
     Dosage: DECREASE MORNING DOSE TO 1ML
     Route: 050
     Dates: start: 20200311, end: 20200316
  8. DUODOPA [Suspect]
     Active Substance: CARBIDOPA\LEVODOPA
     Dosage: DECREASE THE CONTINUOUS DOSE BY 0.2ML
     Route: 050
     Dates: start: 20200316, end: 20200320

REACTIONS (26)
  - Movement disorder [Recovered/Resolved]
  - Stoma site pain [Recovered/Resolved]
  - Drug ineffective [Unknown]
  - Product lot number issue [Unknown]
  - Mobility decreased [Not Recovered/Not Resolved]
  - Muscle rigidity [Not Recovered/Not Resolved]
  - Tremor [Recovered/Resolved]
  - Stoma site discharge [Recovered/Resolved]
  - Gait inability [Recovered/Resolved]
  - Nervousness [Not Recovered/Not Resolved]
  - Gait inability [Recovered/Resolved]
  - Tremor [Not Recovered/Not Resolved]
  - Fall [Not Recovered/Not Resolved]
  - Stoma site extravasation [Recovered/Resolved]
  - Dyskinesia [Recovered/Resolved]
  - Nervousness [Not Recovered/Not Resolved]
  - Therapeutic product effect incomplete [Not Recovered/Not Resolved]
  - Device issue [Unknown]
  - Feeling abnormal [Not Recovered/Not Resolved]
  - COVID-19 [Recovered/Resolved]
  - Gait inability [Not Recovered/Not Resolved]
  - Gait disturbance [Not Recovered/Not Resolved]
  - Freezing phenomenon [Unknown]
  - Gait inability [Recovered/Resolved]
  - Stoma site erythema [Recovered/Resolved]
  - Device issue [Recovered/Resolved]

NARRATIVE: CASE EVENT DATE: 2020
